FAERS Safety Report 25765983 (Version 1)
Quarter: 2025Q3

REPORT INFORMATION
  Report Type: Spontaneous
  Country: US (occurrence: US)
  Receive Date: 20250905
  Receipt Date: 20250905
  Transmission Date: 20251021
  Serious: No
  Sender: DOMPE FARMACEUTICI
  Company Number: US-FARMAPROD-202407-2682

PATIENT
  Age: 80 Year
  Sex: Female

DRUGS (21)
  1. OXERVATE [Suspect]
     Active Substance: CENEGERMIN-BKBJ
     Indication: Neurotrophic keratopathy
     Route: 047
     Dates: start: 20240709
  2. OXERVATE [Suspect]
     Active Substance: CENEGERMIN-BKBJ
  3. OXERVATE [Suspect]
     Active Substance: CENEGERMIN-BKBJ
  4. FLONASE ALLERGY RELIEF [Concomitant]
     Active Substance: FLUTICASONE PROPIONATE
  5. ZYRTEC [Concomitant]
     Active Substance: CETIRIZINE HYDROCHLORIDE
  6. REFRESH TEARS [Concomitant]
     Active Substance: CARBOXYMETHYLCELLULOSE SODIUM
  7. MULTIVITAMIN DAILY [Concomitant]
  8. VALACYCLOVIR [Concomitant]
     Active Substance: VALACYCLOVIR HYDROCHLORIDE
  9. VITAMIN D3 [Concomitant]
     Active Substance: CHOLECALCIFEROL
  10. ALENDRONATE SODIUM [Concomitant]
     Active Substance: ALENDRONATE SODIUM
  11. ASPIRIN [Concomitant]
     Active Substance: ASPIRIN
  12. ATORVASTATIN CALCIUM [Concomitant]
     Active Substance: ATORVASTATIN CALCIUM
  13. ENALAPRIL MALEATE [Concomitant]
     Active Substance: ENALAPRIL MALEATE
  14. GLIMEPIRIDE [Concomitant]
     Active Substance: GLIMEPIRIDE
  15. METFORMIN HYDROCHLORIDE [Concomitant]
     Active Substance: METFORMIN HYDROCHLORIDE
  16. TYLENOL EXTRA STRENGTH [Concomitant]
     Active Substance: ACETAMINOPHEN
  17. ZIRGAN [Concomitant]
     Active Substance: GANCICLOVIR
  18. VYZULTA [Concomitant]
     Active Substance: LATANOPROSTENE BUNOD
  19. LOTEPREDNOL ETABONATE [Concomitant]
     Active Substance: LOTEPREDNOL ETABONATE
  20. BESIVANCE [Concomitant]
     Active Substance: BESIFLOXACIN
  21. BRIMONIDINE TARTRATE-TIMOLOL [Concomitant]

REACTIONS (10)
  - Eye pain [Not Recovered/Not Resolved]
  - Ocular hyperaemia [Unknown]
  - Treatment delayed [Unknown]
  - COVID-19 [Recovering/Resolving]
  - Photophobia [Not Recovered/Not Resolved]
  - Foreign body sensation in eyes [Unknown]
  - Eye irritation [Unknown]
  - Eyelid pain [Unknown]
  - Eye infection viral [Unknown]
  - Eye pruritus [Unknown]

NARRATIVE: CASE EVENT DATE: 20240719
